FAERS Safety Report 16402082 (Version 6)
Quarter: 2023Q2

REPORT INFORMATION
  Report Type: Spontaneous
  Country: IT (occurrence: IT)
  Receive Date: 20190607
  Receipt Date: 20230601
  Transmission Date: 20230722
  Serious: Yes (Other)
  Sender: FDA-Public Use
  Company Number: PHHY2019IT126063

PATIENT
  Sex: Male
  Weight: 1.64 kg

DRUGS (6)
  1. HYDROXYCHLOROQUINE [Suspect]
     Active Substance: HYDROXYCHLOROQUINE
     Indication: Foetal exposure during pregnancy
     Dosage: MOTHER DOSE: 300 MG, QD
     Route: 064
  2. ASPIRIN [Suspect]
     Active Substance: ASPIRIN
     Indication: Foetal exposure during pregnancy
     Dosage: MOTHER DOSE: 100 MG, QD  LOW-DOSE
     Route: 064
  3. FOLIC ACID [Suspect]
     Active Substance: FOLIC ACID
     Indication: Foetal exposure during pregnancy
     Dosage: MATERNAL DOSE: UNK
     Route: 064
  4. UNSPECIFIED INGREDIENT [Suspect]
     Active Substance: UNSPECIFIED INGREDIENT
     Indication: Foetal exposure during pregnancy
     Dosage: MOTHER DOSE: 100 IU/KG, BID
     Route: 064
  5. ECULIZUMAB [Suspect]
     Active Substance: ECULIZUMAB
     Indication: Foetal exposure during pregnancy
     Dosage: MOTHER DOSE: 600 MG FOR 45 MINUTES
     Route: 064
  6. ANTITHROMBIN III HUMAN [Suspect]
     Active Substance: ANTITHROMBIN III HUMAN
     Indication: Foetal exposure during pregnancy
     Dosage: MATERNAL DOSE: 1.7 INTERNALTION UNIT PER KILOGRAM (1 HR)
     Route: 064

REACTIONS (6)
  - Thrombocytopenia neonatal [Recovered/Resolved]
  - Total complement activity decreased [Recovered/Resolved]
  - Complement factor C3 decreased [Recovered/Resolved]
  - Low birth weight baby [Unknown]
  - Premature baby [Unknown]
  - Foetal exposure during pregnancy [Unknown]
